FAERS Safety Report 22880383 (Version 2)
Quarter: 2023Q4

REPORT INFORMATION
  Report Type: Report from Study
  Country: US (occurrence: US)
  Receive Date: 20230829
  Receipt Date: 20231110
  Transmission Date: 20240109
  Serious: No
  Sender: FDA-Public Use
  Company Number: US-002147023-NVSC2023US187484

PATIENT
  Sex: Male

DRUGS (1)
  1. KESIMPTA [Suspect]
     Active Substance: OFATUMUMAB
     Indication: Relapsing multiple sclerosis
     Dosage: UNK
     Route: 065
     Dates: start: 20230821

REACTIONS (6)
  - Influenza like illness [Recovering/Resolving]
  - Chills [Recovering/Resolving]
  - Hyperhidrosis [Recovering/Resolving]
  - Asthenia [Recovering/Resolving]
  - Fatigue [Recovering/Resolving]
  - Sinus headache [Unknown]
